FAERS Safety Report 7260882-5 (Version None)
Quarter: 2011Q1

REPORT INFORMATION
  Report Type: 
  Country: None (occurrence: None)
  Receive Date: 20110130
  Receipt Date: 20101223
  Transmission Date: 20110831
  Serious: No
  Sender: FDA-Public Use
  Company Number: US-ABBOTT-10P-163-0693641-00

PATIENT
  Sex: Female

DRUGS (3)
  1. ATENOLOL [Concomitant]
     Indication: HEART RATE IRREGULAR
  2. HUMIRA [Suspect]
     Indication: PSORIASIS
     Dates: start: 20080101
  3. UNKNOWN MEDICATION [Concomitant]
     Indication: HEART RATE IRREGULAR

REACTIONS (1)
  - PUSTULAR PSORIASIS [None]
